FAERS Safety Report 19423738 (Version 1)
Quarter: 2021Q2

REPORT INFORMATION
  Report Type: Spontaneous
  Country: US (occurrence: US)
  Receive Date: 20210616
  Receipt Date: 20210616
  Transmission Date: 20210717
  Serious: No
  Sender: FDA-Public Use
  Company Number: US-TEVA-2021-US-1915895

PATIENT
  Age: 64 Year
  Sex: Female
  Weight: 63.05 kg

DRUGS (1)
  1. ACICLOVIR [Suspect]
     Active Substance: ACYCLOVIR
     Indication: HERPES ZOSTER
     Route: 065

REACTIONS (4)
  - Swollen tongue [Unknown]
  - Tongue pruritus [Unknown]
  - Tongue discomfort [Unknown]
  - Hypersensitivity [Unknown]
